FAERS Safety Report 24590315 (Version 1)
Quarter: 2024Q4

REPORT INFORMATION
  Report Type: Report from Study
  Country: RO (occurrence: RO)
  Receive Date: 20241107
  Receipt Date: 20241107
  Transmission Date: 20250115
  Serious: Yes (Hospitalization)
  Sender: TEVA
  Company Number: RO-ROCHE-2615925

PATIENT
  Age: 50 Year
  Sex: Female
  Weight: 85 kg

DRUGS (9)
  1. EPIRUBICIN [Suspect]
     Active Substance: EPIRUBICIN
     Indication: HER2 positive breast cancer
     Dosage: EPIRUBICINEPIRUBICIN
     Route: 042
     Dates: start: 20180626, end: 20180828
  2. TRASTUZUMAB [Suspect]
     Active Substance: TRASTUZUMAB
     Indication: HER2 positive breast cancer
     Route: 042
     Dates: start: 20180918, end: 20190801
  3. TRASTUZUMAB [Suspect]
     Active Substance: TRASTUZUMAB
     Indication: HER2 positive breast cancer
     Route: 042
     Dates: start: 20190813, end: 20190924
  4. CARVEDILOL [Concomitant]
     Active Substance: CARVEDILOL
     Indication: Product used for unknown indication
     Dosage: ONGOING = CHECKED
     Route: 065
  5. FLUOROURACIL [Suspect]
     Active Substance: FLUOROURACIL
     Indication: HER2 positive breast cancer
     Route: 042
     Dates: start: 20180626, end: 20180828
  6. DOCETAXEL [Suspect]
     Active Substance: DOCETAXEL
     Indication: HER2 positive breast cancer
     Route: 042
     Dates: start: 20180918, end: 20181120
  7. EUTHYROX [Concomitant]
     Active Substance: LEVOTHYROXINE SODIUM
     Indication: Product used for unknown indication
     Dosage: ONGOING = CHECKED
     Route: 065
  8. NOLIPREL [Concomitant]
     Indication: Product used for unknown indication
     Dosage: ONGOING = CHECKED
     Route: 065
  9. CYCLOPHOSPHAMIDE [Suspect]
     Active Substance: CYCLOPHOSPHAMIDE
     Indication: HER2 positive breast cancer
     Route: 042
     Dates: start: 20180626, end: 20180828

REACTIONS (1)
  - Angina pectoris [Recovered/Resolved]

NARRATIVE: CASE EVENT DATE: 20190713
